FAERS Safety Report 5053173-4 (Version None)
Quarter: 2006Q3

REPORT INFORMATION
  Report Type: 
  Country: None (occurrence: None)
  Receive Date: 20060711
  Receipt Date: 20060630
  Transmission Date: 20061208
  Serious: Yes (Hospitalization, Other)
  Sender: FDA-Public Use
  Company Number: HQWYE387126JUN06

PATIENT
  Age: 67 Year
  Sex: Male
  Weight: 107.05 kg

DRUGS (7)
  1. RAPAMUNE [Suspect]
     Indication: PROPHYLAXIS AGAINST TRANSPLANT REJECTION
     Dosage: 89 MG ONCE DAILY, STUDY SUPPLY; ORAL
     Route: 048
     Dates: start: 20050405, end: 20060609
  2. RAPAMUNE [Suspect]
     Indication: PROPHYLAXIS AGAINST TRANSPLANT REJECTION
     Dosage: UNKNOWN DOSE, COMMERCIAL SUPPLY, ORAL (SEE IMAGE)
     Route: 048
     Dates: start: 20060621, end: 20060601
  3. RAPAMUNE [Suspect]
     Indication: PROPHYLAXIS AGAINST TRANSPLANT REJECTION
     Dosage: UNKNOWN DOSE, COMMERCIAL SUPPLY, ORAL (SEE IMAGE)
     Route: 048
     Dates: start: 20060610, end: 20060615
  4. RAPAMUNE [Suspect]
     Indication: PROPHYLAXIS AGAINST TRANSPLANT REJECTION
     Dosage: UNKNOWN DOSE, COMMERCIAL SUPPLY, ORAL (SEE IMAGE)
     Route: 048
     Dates: start: 20060601, end: 20060623
  5. CELLCEPT [Suspect]
     Indication: PROPHYLAXIS AGAINST TRANSPLANT REJECTION
     Dosage: UNSPECIFIED; ORAL
     Route: 048
  6. ZENAPAX [Concomitant]
  7. CORTICOSTEROID NOS [Concomitant]

REACTIONS (2)
  - DRUG INEFFECTIVE [None]
  - KIDNEY TRANSPLANT REJECTION [None]
